FAERS Safety Report 7033122-X (Version None)
Quarter: 2010Q4

REPORT INFORMATION
  Report Type: 
  Country: None (occurrence: None)
  Receive Date: 20101005
  Receipt Date: 20100924
  Transmission Date: 20110411
  Serious: Yes (Other)
  Sender: FDA-Public Use
  Company Number: DK-ACCORD-006282

PATIENT
  Age: 45 Year
  Sex: Female

DRUGS (1)
  1. ETOPOSIDE [Suspect]

REACTIONS (2)
  - OCCUPATIONAL EXPOSURE TO DRUG [None]
  - SINUSITIS [None]
